FAERS Safety Report 5214287-9 (Version None)
Quarter: 2007Q1

REPORT INFORMATION
  Report Type: 
  Country: None (occurrence: None)
  Receive Date: 20070116
  Receipt Date: 20070104
  Transmission Date: 20070707
  Serious: Yes (Other)
  Sender: FDA-Public Use
  Company Number: OSCN-PR-0701L-0006

PATIENT
  Age: 9 Year
  Sex: Male

DRUGS (7)
  1. OMNISCAN [Suspect]
     Indication: DRUG USE FOR UNKNOWN INDICATION
     Dosage: SINGLE DOSE, I.V.
     Route: 042
     Dates: start: 20020601, end: 20020601
  2. SEVELAMER [Concomitant]
  3. EXTENDED RELEASE NIFEDIPINE [Concomitant]
  4. CALCITRIOL [Concomitant]
  5. CALCIUM CARBONATE [Concomitant]
  6. IRON [Concomitant]
  7. EPOGEN [Concomitant]

REACTIONS (6)
  - CARDIO-RESPIRATORY ARREST [None]
  - JOINT CONTRACTURE [None]
  - NEPHROGENIC FIBROSING DERMOPATHY [None]
  - PULMONARY EMBOLISM [None]
  - RENAL TRANSPLANT [None]
  - SCLERAL DISCOLOURATION [None]
